FAERS Safety Report 6178874-6 (Version None)
Quarter: 2009Q2

REPORT INFORMATION
  Report Type: 
  Country: None (occurrence: None)
  Receive Date: 20090505
  Receipt Date: 20090424
  Transmission Date: 20091009
  Serious: Yes (Hospitalization)
  Sender: FDA-Public Use
  Company Number: JP-BAXTER-2009BH007273

PATIENT
  Age: 13 Year
  Sex: Male
  Weight: 60 kg

DRUGS (2)
  1. FEIBA VH IMMUNO [Suspect]
     Indication: HAEMOSTASIS
     Route: 042
     Dates: start: 20090421, end: 20090423
  2. NOVOSEVEN [Suspect]
     Indication: HAEMOSTASIS
     Route: 042
     Dates: start: 20090421

REACTIONS (1)
  - THROMBOSIS [None]
